FAERS Safety Report 14807830 (Version 4)
Quarter: 2018Q2

REPORT INFORMATION
  Report Type: Report from Study
  Country: US (occurrence: US)
  Receive Date: 20180425
  Receipt Date: 20180604
  Transmission Date: 20180711
  Serious: Yes (Hospitalization, Other)
  Sender: FDA-Public Use
  Company Number: US-BAYER-2018-072172

PATIENT
  Age: 58 Year
  Sex: Female

DRUGS (2)
  1. NEXAVAR [Suspect]
     Active Substance: SORAFENIB
     Indication: HEPATOCELLULAR CARCINOMA
     Dosage: 200 MG, BID
     Dates: start: 20180423, end: 20180426
  2. NEXAVAR [Suspect]
     Active Substance: SORAFENIB
     Indication: HEPATOCELLULAR CARCINOMA
     Dosage: 400 MG, BID
     Dates: start: 20180410, end: 20180416

REACTIONS (19)
  - Headache [None]
  - Headache [Recovering/Resolving]
  - Diarrhoea [None]
  - Anaemia [Recovering/Resolving]
  - Dry skin [None]
  - Hyperglycaemia [Recovering/Resolving]
  - Dyspnoea [Recovering/Resolving]
  - Pain in extremity [None]
  - Stomatitis [Recovering/Resolving]
  - Blister [Recovering/Resolving]
  - Abdominal pain [Recovering/Resolving]
  - Neuropathy peripheral [None]
  - Haemorrhage [None]
  - Dehydration [Recovering/Resolving]
  - Abdominal pain upper [Recovered/Resolved]
  - Diarrhoea [Recovering/Resolving]
  - Abdominal distension [Recovering/Resolving]
  - Hypertension [Recovering/Resolving]
  - Asthenia [None]

NARRATIVE: CASE EVENT DATE: 2018
